FAERS Safety Report 5662808-4 (Version None)
Quarter: 2008Q1

REPORT INFORMATION
  Report Type: 
  Country: None (occurrence: None)
  Receive Date: 20080307
  Receipt Date: 20080226
  Transmission Date: 20080703
  Serious: Yes (Hospitalization)
  Sender: FDA-Public Use
  Company Number: PAR_02125_2008

PATIENT
  Sex: Female

DRUGS (2)
  1. MEGACE ES [Suspect]
     Indication: DECREASED APPETITE
     Dosage: 1 DF QD ORAL
     Route: 048
     Dates: start: 20051220, end: 20060317
  2. DIURETICS (UNKNOWN) [Concomitant]

REACTIONS (2)
  - CELLULITIS [None]
  - DEEP VEIN THROMBOSIS [None]
